FAERS Safety Report 6709172-7 (Version None)
Quarter: 2010Q2

REPORT INFORMATION
  Report Type: 
  Country: None (occurrence: None)
  Receive Date: 20100504
  Receipt Date: 20100427
  Transmission Date: 20101027
  Serious: Yes (Other)
  Sender: FDA-Public Use
  Company Number: US-B.I. PHARMACEUTICALS,INC./RIDGEFIELD-2009-BP-00902BP

PATIENT
  Sex: Female

DRUGS (10)
  1. ATROVENT [Suspect]
     Indication: RHINORRHOEA
     Route: 045
     Dates: start: 20050101, end: 20070101
  2. ATROVENT [Suspect]
     Indication: RHINITIS
     Route: 045
     Dates: start: 20070101
  3. PREDNISONE TAB [Concomitant]
     Indication: BLOOD DISORDER
     Dosage: 5 MG
     Route: 048
     Dates: start: 20060101
  4. GLYBURIDE [Concomitant]
     Indication: DIABETES MELLITUS
     Dosage: 1.25 MG
     Route: 048
     Dates: start: 20070101
  5. SYNTHROID [Concomitant]
  6. XANAX [Concomitant]
  7. VITAMIN D [Concomitant]
  8. FOLIC ACID [Concomitant]
  9. POLY IRON [Concomitant]
  10. OTHER VITAMINS [Concomitant]

REACTIONS (9)
  - CONDITION AGGRAVATED [None]
  - DIABETES MELLITUS [None]
  - DRUG EFFECT DECREASED [None]
  - DRY EYE [None]
  - DYSPHONIA [None]
  - EYE IRRITATION [None]
  - HAEMOLYTIC ANAEMIA [None]
  - INCORRECT DOSE ADMINISTERED [None]
  - LYMPHOMA [None]
